FAERS Safety Report 6568523 (Version 2)
Quarter: 2015Q4

REPORT INFORMATION
  Report Type: Spontaneous
  Country: AU (occurrence: AU)
  Receive Date: 20080303
  Receipt Date: 20151015
  Transmission Date: 20160305
  Serious: Yes (Disabling)
  Sender: FDA-Public Use
  Company Number: AU-PFIZER INC-2008016265

PATIENT
  Age: 34 Year
  Sex: Male
  Weight: 118 kg

DRUGS (1)
  1. CHAMPIX [Suspect]
     Active Substance: VARENICLINE TARTRATE
     Route: 048

REACTIONS (2)
  - Depression [Recovered/Resolved]
  - Anger [Recovered/Resolved]
